FAERS Safety Report 16352366 (Version 5)
Quarter: 2021Q2

REPORT INFORMATION
  Report Type: Spontaneous
  Country: FR (occurrence: FR)
  Receive Date: 20190524
  Receipt Date: 20210507
  Transmission Date: 20210716
  Serious: Yes (Other)
  Sender: FDA-Public Use
  Company Number: FR-GILEAD-2019-0409665

PATIENT
  Age: 47 Year
  Sex: Male

DRUGS (1)
  1. BIKTARVY [Suspect]
     Active Substance: BICTEGRAVIR SODIUM\EMTRICITABINE\TENOFOVIR ALAFENAMIDE FUMARATE
     Indication: HIV INFECTION
     Dosage: UNK
     Route: 065

REACTIONS (7)
  - Genotype drug resistance test positive [Unknown]
  - Blood HIV RNA increased [Not Recovered/Not Resolved]
  - Weight increased [Not Recovered/Not Resolved]
  - Tobacco user [Unknown]
  - Drug interaction [Unknown]
  - Cardiac failure [Unknown]
  - Off label use [Unknown]

NARRATIVE: CASE EVENT DATE: 202104
